FAERS Safety Report 6532231-9 (Version None)
Quarter: 2010Q1

REPORT INFORMATION
  Report Type: 
  Country: None (occurrence: None)
  Receive Date: 20100108
  Receipt Date: 20091228
  Transmission Date: 20100710
  Serious: Yes (Other)
  Sender: FDA-Public Use
  Company Number: PHHY2009MX59278

PATIENT
  Age: 24 Year
  Sex: Female

DRUGS (1)
  1. DIOVAN HCT [Suspect]
     Indication: HYPERTENSION
     Dosage: 2 TABLETS (160/12.5MG) PER DAY
     Route: 048
     Dates: start: 20080301, end: 20091201

REACTIONS (1)
  - JOINT DISLOCATION [None]
